FAERS Safety Report 16871557 (Version 1)
Quarter: 2019Q4

REPORT INFORMATION
  Report Type: Spontaneous
  Country: CN (occurrence: CN)
  Receive Date: 20191001
  Receipt Date: 20191001
  Transmission Date: 20200122
  Serious: Yes (Other)
  Sender: FDA-Public Use
  Company Number: CN-US-PROVELL PHARMACEUTICALS LLC-E2B_90070588

PATIENT
  Age: 78 Year
  Sex: Female

DRUGS (3)
  1. EUTHYROX [Suspect]
     Active Substance: LEVOTHYROXINE SODIUM
     Dosage: DOSE REDUCED.
  2. EUTHYROX [Suspect]
     Active Substance: LEVOTHYROXINE SODIUM
     Indication: POST PROCEDURAL HYPOTHYROIDISM
     Dates: start: 2014, end: 2014
  3. EUTHYROX [Suspect]
     Active Substance: LEVOTHYROXINE SODIUM
     Dates: start: 2014

REACTIONS (10)
  - Aortic arteriosclerosis [Unknown]
  - Condition aggravated [Unknown]
  - Atrial fibrillation [Unknown]
  - Thyroid function test abnormal [Unknown]
  - Tachycardia [Unknown]
  - Poor quality sleep [Unknown]
  - Overdose [Unknown]
  - Treatment noncompliance [Unknown]
  - Dyspnoea [Unknown]
  - Tricuspid valve incompetence [Unknown]
